FAERS Safety Report 9749210 (Version 1)
Quarter: 2013Q4

REPORT INFORMATION
  Report Type: Spontaneous
  Country: US (occurrence: US)
  Receive Date: 20131212
  Receipt Date: 20131212
  Transmission Date: 20140711
  Serious: No
  Sender: FDA-Public Use
  Company Number: US-INCYTE CORPORATION-2013IN002485

PATIENT
  Sex: Female
  Weight: 60.32 kg

DRUGS (20)
  1. JAKAFI [Suspect]
     Indication: POLYCYTHAEMIA
     Dosage: 10 MG, QD
     Route: 048
     Dates: start: 201308
  2. SYNTHROID [Concomitant]
  3. VITAMIN E [Concomitant]
  4. FISH OIL [Concomitant]
  5. MAGNESIUM [Concomitant]
  6. CRANBERRY [Concomitant]
  7. BONIVA [Concomitant]
  8. XANAX [Concomitant]
  9. LOSARTAN POTASSIUM [Concomitant]
  10. METHADONE [Concomitant]
  11. VENLAFAXINE [Concomitant]
  12. B COMPLEX WITH VITAMIN C [Concomitant]
  13. LEVOTHYROXINE [Concomitant]
  14. WARFARIN SODIUM [Concomitant]
  15. HYDROXYUREA [Concomitant]
  16. CALCIUM [Concomitant]
  17. NEXIUM [Concomitant]
  18. EQL SENNA-S TABLET [Concomitant]
  19. ALOE VERA [Concomitant]
  20. COLACE-T [Concomitant]
     Dosage: 100 MG

REACTIONS (2)
  - Feeling abnormal [Unknown]
  - Disorientation [Unknown]
